FAERS Safety Report 4917863-3 (Version None)
Quarter: 2006Q1

REPORT INFORMATION
  Report Type: 
  Country: None (occurrence: None)
  Receive Date: 20060215
  Receipt Date: 20060127
  Transmission Date: 20060701
  Serious: Yes (Hospitalization)
  Sender: FDA-Public Use
  Company Number: 221711

PATIENT
  Age: 60 Year
  Sex: Female
  Weight: 202.4 kg

DRUGS (9)
  1. AVASTIN [Suspect]
     Indication: COLON CANCER
     Dosage: 687.5 MG, Q3W, INTRAVENOUS
     Route: 042
     Dates: start: 20060117
  2. CAPECITABINE (CAPECITABINE) [Suspect]
     Indication: COLON CANCER
     Dosage: 2150 MG, BID, ORAL
     Route: 048
     Dates: start: 20060117
  3. OXALIPLATIN (OXALIPLATIN) [Suspect]
     Indication: COLON CANCER
     Dosage: 275 MG, Q3W, INTRAVENOUS
     Route: 042
  4. LISINOPRIL [Concomitant]
  5. CITALOPRAM (CITALOPRAM) [Concomitant]
  6. FERROUS SULFATE TAB [Concomitant]
  7. GRANISETRON  HCL [Concomitant]
  8. METOCLORPAMIDE (METOCLOPRAMIDE HYDROCHLORIDE) [Concomitant]
  9. DEXAMETHASONE [Concomitant]

REACTIONS (7)
  - BRONCHOSPASM [None]
  - DYSARTHRIA [None]
  - DYSPNOEA [None]
  - MUSCLE SPASMS [None]
  - PARAESTHESIA [None]
  - SPEECH DISORDER [None]
  - WHEEZING [None]
